FAERS Safety Report 4440378-6 (Version None)
Quarter: 2004Q3

REPORT INFORMATION
  Report Type: 
  Country: None (occurrence: None)
  Receive Date: 20040901
  Receipt Date: 20040901
  Transmission Date: 20050211
  Serious: No
  Sender: FDA-Public Use
  Company Number: None

PATIENT
  Age: 50 Year
  Sex: Male

DRUGS (2)
  1. LITHIUM 300 MG [Suspect]
     Dosage: 300 MG TID ORAL
     Route: 048
  2. LITHIUM 750 MG [Suspect]
     Dosage: 750 MG HS ORAL
     Route: 048

REACTIONS (1)
  - DRUG LEVEL INCREASED [None]
